FAERS Safety Report 11929541 (Version 1)
Quarter: 2016Q1

REPORT INFORMATION
  Report Type: Spontaneous
  Country: US (occurrence: None)
  Receive Date: 20160119
  Receipt Date: 20160119
  Transmission Date: 20160526
  Serious: No
  Sender: FDA-Public Use
  Company Number: None

PATIENT
  Age: 16 Year
  Sex: Male
  Weight: 86.18 kg

DRUGS (1)
  1. EPIDUO FORTE [Suspect]
     Active Substance: ADAPALENE\BENZOYL PEROXIDE
     Indication: ACNE
     Dosage: PEA SIZE AMOUNT, APPLIED TO A SURFACE, USUALLY THE SKIN
     Dates: start: 20151231, end: 20160112

REACTIONS (4)
  - Application site exfoliation [None]
  - Application site pain [None]
  - Application site discolouration [None]
  - Application site dryness [None]

NARRATIVE: CASE EVENT DATE: 20151231
